FAERS Safety Report 11644460 (Version 1)
Quarter: 2015Q4

REPORT INFORMATION
  Report Type: Spontaneous
  Country: US (occurrence: US)
  Receive Date: 20151020
  Receipt Date: 20151020
  Transmission Date: 20160304
  Serious: No
  Sender: FDA-Public Use
  Company Number: US-GLAXOSMITHKLINE-US2015GSK147869

PATIENT
  Sex: Female

DRUGS (1)
  1. COREG CR [Suspect]
     Active Substance: CARVEDILOL PHOSPHATE
     Indication: CARDIAC FAILURE CONGESTIVE
     Dosage: 20 MG, U
     Dates: start: 200703

REACTIONS (9)
  - Nasal septum deviation [Unknown]
  - Hypoglycaemia [Unknown]
  - Gingivitis [Unknown]
  - Bedridden [Unknown]
  - Vitamin D deficiency [Unknown]
  - Sinusitis [Unknown]
  - Malaise [Unknown]
  - Headache [Unknown]
  - Migraine [Unknown]
